FAERS Safety Report 9751921 (Version 2)
Quarter: 2014Q1

REPORT INFORMATION
  Report Type: Spontaneous
  Country: US (occurrence: US)
  Receive Date: 20131213
  Receipt Date: 20140108
  Transmission Date: 20141002
  Serious: No
  Sender: FDA-Public Use
  Company Number: US-009507513-1312USA004119

PATIENT
  Sex: Female

DRUGS (1)
  1. DULERA [Suspect]
     Dosage: ROUTE: INHALED
     Route: 055

REACTIONS (5)
  - Feeling hot [Unknown]
  - Dysphonia [Unknown]
  - Product quality issue [Unknown]
  - Product quality issue [Unknown]
  - Drug administration error [Unknown]
